FAERS Safety Report 24928702 (Version 1)
Quarter: 2025Q1

REPORT INFORMATION
  Report Type: Spontaneous
  Country: CA (occurrence: CA)
  Receive Date: 20250205
  Receipt Date: 20250205
  Transmission Date: 20250409
  Serious: Yes (Death, Life-Threatening, Hospitalization, Other)
  Sender: ALKEM
  Company Number: CA-ALKEM LABORATORIES LIMITED-CA-ALKEM-2025-01063

PATIENT
  Age: 9 Month
  Sex: Male

DRUGS (4)
  1. VIGABATRIN [Suspect]
     Active Substance: VIGABATRIN
     Indication: Infantile spasms
     Dosage: 50 MILLIGRAM/KILOGRAM, QD (INITIAL DOSE TITRATED UP TO 130 MILLIGRAM/KILOGRAM/DAY OVER A 7-DAY PERIO
     Route: 065
  2. VIGABATRIN [Suspect]
     Active Substance: VIGABATRIN
     Dosage: 130 MILLIGRAM/KILOGRAM, QD (FOR APPROXIMATELY 5 WEEKS)
     Route: 065
  3. PREDNISOLONE [Concomitant]
     Active Substance: PREDNISOLONE
     Indication: Infantile spasms
     Route: 065
  4. PREDNISOLONE [Concomitant]
     Active Substance: PREDNISOLONE
     Dosage: 5 MILLIGRAM, TID (FINAL WEEK)
     Route: 065

REACTIONS (4)
  - Encephalopathy [Fatal]
  - Haemodynamic instability [Fatal]
  - Toxicity to various agents [Fatal]
  - Multiple organ dysfunction syndrome [Fatal]
